FAERS Safety Report 12210162 (Version 2)
Quarter: 2016Q2

REPORT INFORMATION
  Report Type: Spontaneous
  Country: US (occurrence: US)
  Receive Date: 20160325
  Receipt Date: 20160418
  Transmission Date: 20160815
  Serious: No
  Sender: FDA-Public Use
  Company Number: US-PFIZER INC-2016156174

PATIENT
  Age: 55 Year
  Sex: Female

DRUGS (10)
  1. EFFEXOR [Concomitant]
     Active Substance: VENLAFAXINE HYDROCHLORIDE
  2. XANAX [Concomitant]
     Active Substance: ALPRAZOLAM
  3. LASIX [Concomitant]
     Active Substance: FUROSEMIDE
  4. ALBUTEROL. [Concomitant]
     Active Substance: ALBUTEROL
  5. LYRICA [Suspect]
     Active Substance: PREGABALIN
     Indication: FIBROMYALGIA
     Dosage: 200 MG, 3X/DAY
     Route: 048
     Dates: start: 20160225
  6. LISINOPRIL. [Concomitant]
     Active Substance: LISINOPRIL
  7. TRAZODONE [Concomitant]
     Active Substance: TRAZODONE HYDROCHLORIDE
  8. DULERA [Concomitant]
     Active Substance: FORMOTEROL FUMARATE DIHYDRATE\MOMETASONE FUROATE
  9. CELEXA [Concomitant]
     Active Substance: CITALOPRAM HYDROBROMIDE
  10. MECLIZINE [Concomitant]
     Active Substance: MECLIZINE HYDROCHLORIDE

REACTIONS (4)
  - Drug withdrawal syndrome [Unknown]
  - Chills [Unknown]
  - Diarrhoea [Unknown]
  - Prescribed overdose [Unknown]
